FAERS Safety Report 6923419-3 (Version None)
Quarter: 2010Q3

REPORT INFORMATION
  Report Type: 
  Country: None (occurrence: None)
  Receive Date: 20100728
  Receipt Date: 20100719
  Transmission Date: 20110219
  Serious: Yes (Hospitalization, Disabling)
  Sender: FDA-Public Use
  Company Number: 2010025319

PATIENT
  Age: 52 Year
  Sex: Female

DRUGS (5)
  1. PRIVIGEN [Suspect]
     Indication: BK VIRUS INFECTION
     Dosage: 70 G, 60 G, 20 GRAM VIAL, 10 G, 10 GRAM VIAL INTRAVENOUS
     Route: 042
     Dates: start: 20100625, end: 20100625
  2. PRIVIGEN [Suspect]
     Indication: IMMUNOSUPPRESSION
     Dosage: 70 G, 60 G, 20 GRAM VIAL, 10 G, 10 GRAM VIAL INTRAVENOUS
     Route: 042
     Dates: start: 20100625, end: 20100625
  3. PRIVIGEN [Suspect]
  4. SIROLIMUS (RAPAMUNE) [Concomitant]
  5. LEFLUNOMIDE [Concomitant]

REACTIONS (3)
  - DRUG HYPERSENSITIVITY [None]
  - INFUSION RELATED REACTION [None]
  - TRANSPLANT REJECTION [None]
